FAERS Safety Report 6340448-1 (Version None)
Quarter: 2009Q3

REPORT INFORMATION
  Report Type: 
  Country: None (occurrence: None)
  Receive Date: 20090904
  Receipt Date: 20090825
  Transmission Date: 20100115
  Serious: Yes (Other)
  Sender: FDA-Public Use
  Company Number: ES-RANBAXY-2009RR-27077

PATIENT
  Age: 55 Year
  Sex: Male

DRUGS (8)
  1. LAMIVUDINE [Suspect]
     Indication: HIV INFECTION
  2. LOPINAVIR [Suspect]
     Indication: HIV INFECTION
  3. RITONAVIR [Suspect]
     Indication: HIV INFECTION
  4. ZIDOVUDINE [Suspect]
     Indication: HIV INFECTION
  5. DIDANOSINE [Suspect]
  6. EMTRICITABINE [Suspect]
     Indication: HIV INFECTION
  7. FOSAMPRENAVIR [Suspect]
     Indication: HIV INFECTION
  8. TENOFOVIR DISOPROXIL FUMARATE [Suspect]
     Indication: HIV INFECTION

REACTIONS (2)
  - PORTAL HYPERTENSION [None]
  - PULMONARY HYPERTENSION [None]
